FAERS Safety Report 9069624 (Version 1)
Quarter: 2013Q1

REPORT INFORMATION
  Report Type: Spontaneous
  Country: FR (occurrence: FR)
  Receive Date: 20130215
  Receipt Date: 20130215
  Transmission Date: 20140127
  Serious: Yes (Hospitalization)
  Sender: FDA-Public Use
  Company Number: PHHY2013FR014798

PATIENT
  Age: 80 None
  Sex: Female

DRUGS (3)
  1. AMOXICILLIN\CLAVULANATE POTASSIUM [Suspect]
     Indication: URINARY TRACT INFECTION
     Dosage: UNK UKN, UNK
     Route: 042
     Dates: start: 20101001, end: 20101009
  2. CIPROFLOXACIN PANPHARMA [Interacting]
     Indication: CELLULITIS
     Dosage: UNK UKN, UNK
     Route: 042
     Dates: start: 20101001, end: 20101009
  3. PREVISCAN [Interacting]
     Dosage: UNK UKN, UNK
     Route: 048
     Dates: start: 20100924, end: 20101009

REACTIONS (4)
  - Gastric haemorrhage [Recovered/Resolved]
  - International normalised ratio increased [Recovered/Resolved]
  - Prothrombin time ratio decreased [None]
  - Drug interaction [None]
